FAERS Safety Report 4518028-X (Version None)
Quarter: 2004Q4

REPORT INFORMATION
  Report Type: 
  Country: None (occurrence: None)
  Receive Date: 20041130
  Receipt Date: 20041111
  Transmission Date: 20050328
  Serious: Yes (Life-Threatening, Hospitalization)
  Sender: FDA-Public Use
  Company Number: WAES 0411USA02093

PATIENT
  Age: 41 Year
  Sex: Male

DRUGS (4)
  1. VIOXX [Suspect]
     Indication: ANKYLOSING SPONDYLITIS
     Dosage: 25 MG/DAILY PO
     Route: 048
     Dates: start: 20020624, end: 20040927
  2. ENBREL [Suspect]
     Indication: ANKYLOSING SPONDYLITIS
     Dosage: 25 MG/2XW SC
     Route: 058
     Dates: start: 20040819, end: 20040930
  3. ENBREL [Suspect]
     Indication: CROHN'S DISEASE
     Dosage: 25 MG/2XW SC
     Route: 058
     Dates: start: 20040819, end: 20040930
  4. BUDESONIDE [Concomitant]

REACTIONS (9)
  - BLOOD CREATINE PHOSPHOKINASE MB INCREASED [None]
  - C-REACTIVE PROTEIN INCREASED [None]
  - DEHYDRATION [None]
  - DEMYELINATION [None]
  - DEPRESSED LEVEL OF CONSCIOUSNESS [None]
  - DIARRHOEA [None]
  - KORSAKOFF'S PSYCHOSIS NON-ALCOHOLIC [None]
  - MYOGLOBIN BLOOD INCREASED [None]
  - WHITE BLOOD CELL COUNT INCREASED [None]
